FAERS Safety Report 6400979-2 (Version None)
Quarter: 2009Q4

REPORT INFORMATION
  Report Type: 
  Country: None (occurrence: None)
  Receive Date: 20091015
  Receipt Date: 20091008
  Transmission Date: 20100525
  Serious: Yes (Hospitalization, Other)
  Sender: FDA-Public Use
  Company Number: US-BIOGENIDEC-2009BI011976

PATIENT
  Age: 29 Year
  Sex: Female
  Weight: 63 kg

DRUGS (9)
  1. TYSABRI [Suspect]
     Indication: MULTIPLE SCLEROSIS
     Route: 042
     Dates: start: 20080807, end: 20081014
  2. NOVANTRONE [Concomitant]
     Indication: MULTIPLE SCLEROSIS
     Route: 042
     Dates: start: 20081212
  3. LEVETIRACETAM [Concomitant]
     Indication: CONVULSION
     Route: 048
     Dates: start: 20080801
  4. SERTRALINE HCL [Concomitant]
     Indication: DEPRESSION
     Route: 048
  5. ZIPROSIDONE [Concomitant]
     Indication: BIPOLAR DISORDER
     Route: 048
  6. LIORESAL [Concomitant]
     Indication: MUSCLE SPASTICITY
     Route: 048
  7. KLONOPIN [Concomitant]
     Route: 048
  8. ZANAFLEX [Concomitant]
     Indication: MUSCLE SPASTICITY
     Route: 048
  9. SYNTHROID [Concomitant]
     Indication: HYPOTHYROIDISM
     Route: 048

REACTIONS (1)
  - NEUTROPENIA [None]
